FAERS Safety Report 7586969-5 (Version None)
Quarter: 2011Q3

REPORT INFORMATION
  Report Type: 
  Country: None (occurrence: None)
  Receive Date: 20110701
  Receipt Date: 20110616
  Transmission Date: 20111222
  Serious: Yes (Hospitalization, Other)
  Sender: FDA-Public Use
  Company Number: PHHY2011CA51337

PATIENT
  Sex: Female

DRUGS (17)
  1. CRESTOR [Concomitant]
     Dosage: 20 MG, DAILY
  2. GLICLAZIDE [Concomitant]
     Dosage: 80 MG, BID
  3. LASIX [Concomitant]
  4. TYLENOL-500 [Concomitant]
  5. VITAMIN B-12 [Concomitant]
     Dosage: 1200 MG, DAILY
  6. NORVASC [Concomitant]
     Dosage: 5 MG, DAILY
  7. SEROQUEL XR [Concomitant]
  8. EXELON [Suspect]
  9. SYNTHROID [Concomitant]
     Dosage: 112 MG, DAILY
  10. SEROQUEL [Concomitant]
     Dosage: 50 MG AM + 175 MG HS
  11. SENOKOT [Concomitant]
  12. CLOZAPINE [Suspect]
     Indication: DYSKINESIA
     Dosage: 75 MG, UNK
     Dates: start: 20100310, end: 20110531
  13. VALPROATE SODIUM [Concomitant]
     Dosage: 500 MG PM AND 750 MG HS
  14. NEXIUM [Concomitant]
     Dosage: 40 MG, BID
  15. RAMIPRIL [Concomitant]
     Dosage: 2.5 MG, UNK
  16. CLOZAPINE [Suspect]
     Indication: BIPOLAR DISORDER
  17. COLACE [Concomitant]

REACTIONS (6)
  - GENERAL PHYSICAL CONDITION ABNORMAL [None]
  - ABNORMAL BEHAVIOUR [None]
  - TARDIVE DYSKINESIA [None]
  - DEMENTIA [None]
  - COGNITIVE DISORDER [None]
  - CEREBRAL DISORDER [None]
